FAERS Safety Report 8110312-6 (Version None)
Quarter: 2012Q1

REPORT INFORMATION
  Report Type: 
  Country: None (occurrence: None)
  Receive Date: 20120202
  Receipt Date: 20120118
  Transmission Date: 20120608
  Serious: Yes (Life-Threatening, Hospitalization)
  Sender: FDA-Public Use
  Company Number: US-ROCHE-787646

PATIENT
  Age: 83 Year
  Sex: Female

DRUGS (4)
  1. DIGOXIN [Concomitant]
  2. LASIX [Concomitant]
  3. THEOPHYLLINE [Concomitant]
     Indication: PRODUCT USED FOR UNKNOWN INDICATION
  4. VISMODEGIB [Suspect]
     Indication: BASAL CELL CARCINOMA
     Dosage: FREQUENCY REPORTED AS DAILY
     Route: 048

REACTIONS (2)
  - CHOLESTASIS [None]
  - HEPATOCELLULAR INJURY [None]
